FAERS Safety Report 24146958 (Version 1)
Quarter: 2024Q3

REPORT INFORMATION
  Report Type: Report from Study
  Country: US (occurrence: US)
  Receive Date: 20240729
  Receipt Date: 20240729
  Transmission Date: 20241017
  Serious: Yes (Other)
  Sender: ASTELLAS
  Company Number: US-ASTELLAS-2024US021275

PATIENT
  Age: 45 Year
  Sex: Male

DRUGS (1)
  1. GILTERITINIB [Suspect]
     Active Substance: GILTERITINIB
     Indication: Acute leukaemia
     Route: 048
     Dates: start: 20240704

REACTIONS (4)
  - Mental impairment [Unknown]
  - Brain fog [Unknown]
  - Lethargy [Unknown]
  - Underdose [Unknown]

NARRATIVE: CASE EVENT DATE: 20240704
